FAERS Safety Report 20794329 (Version 2)
Quarter: 2022Q2

REPORT INFORMATION
  Report Type: Report from Study
  Country: CO (occurrence: CO)
  Receive Date: 20220506
  Receipt Date: 20220526
  Transmission Date: 20220721
  Serious: Yes (Hospitalization, Other)
  Sender: FDA-Public Use
  Company Number: CO-ASTELLAS-2022US016247

PATIENT
  Age: 63 Year
  Sex: Female

DRUGS (1)
  1. TACROLIMUS [Suspect]
     Active Substance: TACROLIMUS
     Indication: Renal transplant
     Dosage: 3 MG, ONCE DAILY (1MG, THREE CAPSULES DAILY)
     Route: 048
     Dates: start: 20090703

REACTIONS (7)
  - Weight fluctuation [Recovering/Resolving]
  - Muscle atrophy [Not Recovered/Not Resolved]
  - Diverticulitis [Recovered/Resolved]
  - Female genital tract fistula [Unknown]
  - Diarrhoea [Recovered/Resolved]
  - Abdominal pain upper [Recovering/Resolving]
  - Colitis [Recovering/Resolving]

NARRATIVE: CASE EVENT DATE: 20180102
